FAERS Safety Report 9189376 (Version 2)
Quarter: 2013Q2

REPORT INFORMATION
  Report Type: Spontaneous
  Country: US (occurrence: None)
  Receive Date: 20130322
  Receipt Date: 20130501
  Transmission Date: 20140414
  Serious: Yes (Disabling, Other)
  Sender: FDA-Public Use
  Company Number: US-1197108

PATIENT
  Age: 61 Year
  Sex: Female

DRUGS (2)
  1. DUREZOL [Suspect]
     Indication: POSTOPERATIVE CARE
     Route: 047
     Dates: start: 20130227
  2. MOTRIN [Concomitant]

REACTIONS (1)
  - Optic ischaemic neuropathy [None]
